FAERS Safety Report 7472200-8 (Version None)
Quarter: 2011Q2

REPORT INFORMATION
  Report Type: 
  Country: None (occurrence: None)
  Receive Date: 20110511
  Receipt Date: 20110308
  Transmission Date: 20111010
  Serious: No
  Sender: FDA-Public Use
  Company Number: A0917167A

PATIENT
  Age: 46 Year
  Sex: Female

DRUGS (2)
  1. TYKERB [Suspect]
     Indication: BREAST CANCER
     Route: 048
     Dates: start: 20110101
  2. ACETAMINOPHEN [Concomitant]

REACTIONS (4)
  - RASH [None]
  - NAUSEA [None]
  - FATIGUE [None]
  - DIZZINESS [None]
